FAERS Safety Report 6093644-5 (Version None)
Quarter: 2009Q1

REPORT INFORMATION
  Report Type: 
  Country: None (occurrence: None)
  Receive Date: 20090223
  Receipt Date: 20090212
  Transmission Date: 20090719
  Serious: Yes (Life-Threatening, Hospitalization)
  Sender: FDA-Public Use
  Company Number: 179074

PATIENT
  Age: 66 Year
  Sex: Male
  Weight: 67 kg

DRUGS (5)
  1. PACLITAXEL [Suspect]
     Indication: OESOPHAGEAL CANCER METASTATIC
     Dosage: 306 MG, PER CYCLE, INTRAVENOUS
     Route: 042
     Dates: start: 20090206, end: 20090206
  2. ONDANSETRON [Concomitant]
  3. DEXAMETHASONE [Concomitant]
  4. RANITIDINE HCL [Concomitant]
  5. (FENISTIL) [Concomitant]

REACTIONS (2)
  - ANAPHYLACTIC REACTION [None]
  - CARDIAC ARREST [None]
